FAERS Safety Report 19308321 (Version 1)
Quarter: 2021Q2

REPORT INFORMATION
  Report Type: Spontaneous
  Country: JP (occurrence: JP)
  Receive Date: 20210526
  Receipt Date: 20210526
  Transmission Date: 20210717
  Serious: Yes (Hospitalization)
  Sender: FDA-Public Use
  Company Number: JP-TEVA-2021-JP-1914772

PATIENT
  Age: 78 Year
  Sex: Male

DRUGS (5)
  1. CILOSTAZOL. [Suspect]
     Active Substance: CILOSTAZOL
     Indication: ANTIPLATELET THERAPY
     Dosage: 200 MILLIGRAM DAILY;
     Route: 065
  2. ASPIRIN. [Suspect]
     Active Substance: ASPIRIN
     Indication: PROPHYLAXIS
     Dosage: 100 MILLIGRAM DAILY;
     Route: 065
  3. HEPARIN [Suspect]
     Active Substance: HEPARIN SODIUM
     Indication: ATRIAL FIBRILLATION
     Dosage: ELECTIVE CAROTID ENDARTERECTOMY PROCEDURE WAS PERFORMED UNDER SYSTEMIC HEPARINISATION WITH HEPARI...
     Route: 065
  4. HEPARIN [Suspect]
     Active Substance: HEPARIN SODIUM
     Indication: ANTICOAGULANT THERAPY
     Dosage: CORONARY ARTERY BYPASS GRAFTING WAS DONE UNDER SYSTEMIC HEPARINISATION WITH HEPARIN 15000U
     Route: 065
  5. ASPIRIN. [Suspect]
     Active Substance: ASPIRIN
     Indication: ATRIAL FIBRILLATION

REACTIONS (3)
  - Cerebral hyperperfusion syndrome [Recovered/Resolved]
  - Drug ineffective [Unknown]
  - Subarachnoid haemorrhage [Recovered/Resolved]
